FAERS Safety Report 18382244 (Version 1)
Quarter: 2020Q4

REPORT INFORMATION
  Report Type: Spontaneous
  Country: US (occurrence: US)
  Receive Date: 20201013
  Receipt Date: 20201013
  Transmission Date: 20210114
  Serious: Yes (Hospitalization)
  Sender: FDA-Public Use
  Company Number: None

PATIENT
  Age: 14 Year
  Sex: Male
  Weight: 84.7 kg

DRUGS (6)
  1. CYTARABINE. [Suspect]
     Active Substance: CYTARABINE
     Dates: end: 20200926
  2. METHOTREXATE. [Suspect]
     Active Substance: METHOTREXATE
     Dates: end: 20201001
  3. MERCAPTOPURINE. [Suspect]
     Active Substance: MERCAPTOPURINE
     Dates: end: 20200930
  4. CYCLOPHOSPHAMIDE. [Suspect]
     Active Substance: CYCLOPHOSPHAMIDE
     Dates: end: 20200917
  5. VINCRISTINE SULFATE. [Suspect]
     Active Substance: VINCRISTINE SULFATE
     Dates: end: 20201001
  6. ONCASPAR [Suspect]
     Active Substance: PEGASPARGASE
     Dosage: ?          OTHER DOSE:5078 UNIT;?
     Dates: end: 20201001

REACTIONS (12)
  - Dysmetria [None]
  - Pyrexia [None]
  - Neutrophil count decreased [None]
  - Dysarthria [None]
  - Magnetic resonance imaging brain abnormal [None]
  - Vomiting [None]
  - Diarrhoea [None]
  - Confusional state [None]
  - Headache [None]
  - Tremor [None]
  - Asthenia [None]
  - Hemiparesis [None]

NARRATIVE: CASE EVENT DATE: 20201001
